FAERS Safety Report 12585992 (Version 2)
Quarter: 2016Q4

REPORT INFORMATION
  Report Type: Spontaneous
  Country: US (occurrence: US)
  Receive Date: 20160725
  Receipt Date: 20161019
  Transmission Date: 20170207
  Serious: Yes (Other)
  Sender: FDA-Public Use
  Company Number: US-ACCORD-042475

PATIENT
  Age: 57 Year
  Sex: Female

DRUGS (1)
  1. SIMVASTATIN ACCORD [Suspect]
     Active Substance: SIMVASTATIN
     Indication: BLOOD CHOLESTEROL INCREASED
     Dosage: STRENGTH: 40 MG?40 MG PO QD ABOUT 10 YEARS AGO?TABLETS: ORANGE WITH MARKINGS 9S ON IT
     Route: 048
     Dates: end: 2015

REACTIONS (4)
  - Joint stiffness [Unknown]
  - Uterine cancer [Unknown]
  - Muscular weakness [Unknown]
  - Ovarian cancer [Unknown]

NARRATIVE: CASE EVENT DATE: 2015
